FAERS Safety Report 12138508 (Version 1)
Quarter: 2016Q1

REPORT INFORMATION
  Report Type: Spontaneous
  Country: US (occurrence: US)
  Receive Date: 20160302
  Receipt Date: 20160302
  Transmission Date: 20160526
  Serious: No
  Sender: FDA-Public Use
  Company Number: US-SA-2015SA199132

PATIENT
  Age: 63 Year
  Sex: Female

DRUGS (9)
  1. CERDELGA [Suspect]
     Active Substance: ELIGLUSTAT
     Route: 065
     Dates: start: 20150314
  2. CERDELGA [Suspect]
     Active Substance: ELIGLUSTAT
     Route: 065
  3. VITAMIN C [Concomitant]
     Active Substance: ASCORBIC ACID
  4. COQ10 [Concomitant]
     Active Substance: UBIDECARENONE
  5. EVAMIST [Concomitant]
     Active Substance: ESTRADIOL
  6. CERDELGA [Suspect]
     Active Substance: ELIGLUSTAT
     Route: 065
  7. VITAMIN B12 [Concomitant]
     Active Substance: CYANOCOBALAMIN
  8. PROGESTERONE. [Concomitant]
     Active Substance: PROGESTERONE
  9. CERDELGA [Suspect]
     Active Substance: ELIGLUSTAT
     Route: 065
     Dates: start: 201509

REACTIONS (8)
  - Back pain [Unknown]
  - Oesophageal spasm [Unknown]
  - Hyperhidrosis [Unknown]
  - Headache [Unknown]
  - Urticaria [Unknown]
  - Fatigue [Unknown]
  - Constipation [Not Recovered/Not Resolved]
  - Pain in extremity [Unknown]

NARRATIVE: CASE EVENT DATE: 2015
